FAERS Safety Report 4332086-7 (Version None)
Quarter: 2004Q2

REPORT INFORMATION
  Report Type: 
  Country: None (occurrence: None)
  Receive Date: 20040405
  Receipt Date: 20030616
  Transmission Date: 20050107
  Serious: Yes (Hospitalization)
  Sender: FDA-Public Use
  Company Number: FR-BRISTOL-MYERS SQUIBB COMPANY-12304705

PATIENT
  Age: 36 Year
  Sex: Female

DRUGS (19)
  1. ENDOXAN-ASTA [Suspect]
     Indication: PRECURSOR B-LYMPHOBLASTIC LYMPHOMA
     Route: 042
     Dates: start: 20030329, end: 20030329
  2. METHOTREXATE [Suspect]
     Route: 037
     Dates: start: 20030326, end: 20030326
  3. CERUBIDINE [Suspect]
     Route: 042
     Dates: start: 20030329, end: 20030329
  4. ONCOVIN [Suspect]
     Route: 042
     Dates: start: 20030329, end: 20030329
  5. ARACYTINE [Suspect]
     Route: 037
     Dates: start: 20030328, end: 20030328
  6. KIDROLASE [Suspect]
     Route: 042
     Dates: start: 20030329, end: 20030329
  7. FASTURTEC [Concomitant]
     Dates: start: 20030321, end: 20030321
  8. TAZOCILLINE [Concomitant]
     Dates: end: 20030428
  9. TAVANIC [Concomitant]
     Dates: start: 20030425, end: 20030425
  10. TRIFLUCAN [Concomitant]
     Dosage: 22-MAR-2003 TO 11-APR-2003;  15-APR-2003 TO 29-APR-2003.
     Dates: start: 20030322, end: 20030429
  11. FUROSEMIDE [Concomitant]
     Dosage: 26-MAR-2003 TO 06-APR-2003; 29-APR-2003 TO 10-MAY-2003.
     Dates: start: 20030326, end: 20030510
  12. DUPHALAC [Concomitant]
  13. MOPRAL [Concomitant]
  14. TOPALGIC [Concomitant]
  15. ZOPHREN [Concomitant]
  16. FUNGIZONE [Concomitant]
     Dates: start: 20030424, end: 20030428
  17. DEPO-MEDROL [Concomitant]
     Route: 037
  18. PREDNISONE [Concomitant]
  19. XANAX [Concomitant]

REACTIONS (2)
  - HEPATIC STEATOSIS [None]
  - JAUNDICE [None]
